FAERS Safety Report 8059340-X (Version None)
Quarter: 2012Q1

REPORT INFORMATION
  Report Type: 
  Country: None (occurrence: None)
  Receive Date: 20120120
  Receipt Date: 20120120
  Transmission Date: 20120608
  Serious: Yes (Other)
  Sender: FDA-Public Use
  Company Number: None

PATIENT

DRUGS (4)
  1. ZOCOR [Concomitant]
     Route: 048
  2. COGENTIN [Concomitant]
     Route: 048
  3. ATIVAN [Concomitant]
     Route: 048
  4. RISPERIDONE [Suspect]
     Indication: PSYCHOTIC DISORDER
     Dosage: ONE TABLET
     Route: 048
     Dates: start: 20120113, end: 20120119

REACTIONS (9)
  - CONSTIPATION [None]
  - INSOMNIA [None]
  - SOMNOLENCE [None]
  - CONFUSIONAL STATE [None]
  - APPETITE DISORDER [None]
  - WEIGHT INCREASED [None]
  - PRESYNCOPE [None]
  - THIRST [None]
  - TREMOR [None]
